FAERS Safety Report 4465429-4 (Version None)
Quarter: 2004Q4

REPORT INFORMATION
  Report Type: 
  Country: None (occurrence: None)
  Receive Date: 20041004
  Receipt Date: 20040915
  Transmission Date: 20050328
  Serious: Yes (Death)
  Sender: FDA-Public Use
  Company Number: ZA-GLAXOSMITHKLINE-B0345800A

PATIENT
  Age: 36 Year
  Sex: Female

DRUGS (3)
  1. LAMICTIN [Suspect]
     Indication: EPILEPSY
     Dosage: 100MG TWICE PER DAY
     Route: 048
     Dates: start: 20030618
  2. VENLAFAXINE [Concomitant]
     Dosage: 755MG PER DAY
  3. CIPRAMIL [Concomitant]
     Indication: DEPRESSION
     Dosage: 20MG PER DAY
     Route: 048
     Dates: start: 20020101

REACTIONS (4)
  - DRUG INEFFECTIVE [None]
  - EPILEPSY [None]
  - PULMONARY HAEMORRHAGE [None]
  - TONGUE HAEMATOMA [None]
